FAERS Safety Report 16981042 (Version 8)
Quarter: 2021Q4

REPORT INFORMATION
  Report Type: Spontaneous
  Country: US (occurrence: US)
  Receive Date: 20191031
  Receipt Date: 20211026
  Transmission Date: 20220303
  Serious: Yes (Other)
  Sender: FDA-Public Use
  Company Number: US-GLAXOSMITHKLINE-US2019AMR192384

PATIENT
  Sex: Female

DRUGS (1)
  1. BENLYSTA [Suspect]
     Active Substance: BELIMUMAB
     Indication: Systemic lupus erythematosus
     Dosage: UNK, WE, 200 MG/ML

REACTIONS (8)
  - Systemic lupus erythematosus [Unknown]
  - Oropharyngeal pain [Unknown]
  - Nasopharyngitis [Unknown]
  - Dysphonia [Unknown]
  - Alopecia [Unknown]
  - Pain [Recovering/Resolving]
  - Product dose omission issue [Unknown]
  - Therapeutic response unexpected [Unknown]
